FAERS Safety Report 8990920 (Version 1)
Quarter: 2012Q4

REPORT INFORMATION
  Report Type: Spontaneous
  Country: DK (occurrence: None)
  Receive Date: 20121221
  Receipt Date: 20121221
  Transmission Date: 20130627
  Serious: Yes (Other)
  Sender: FDA-Public Use
  Company Number: 2012P1067071

PATIENT

DRUGS (2)
  1. AMPICILLIN (NO PREF. NAME) [Suspect]
     Indication: NATIVE VALVE ENDOCARDITIS
  2. VANCOMYCIN (NO PREF. NAME) [Suspect]
     Indication: NATIVE VALVE ENDOCARDITIS

REACTIONS (1)
  - Nephropathy toxic [None]
